FAERS Safety Report 21524394 (Version 2)
Quarter: 2023Q4

REPORT INFORMATION
  Report Type: Spontaneous
  Country: US (occurrence: US)
  Receive Date: 20221029
  Receipt Date: 20231003
  Transmission Date: 20240110
  Serious: No
  Sender: FDA-Public Use
  Company Number: US-NOVARTISTESTPH-NVSC2022US242832

PATIENT
  Sex: Female

DRUGS (2)
  1. XIIDRA [Suspect]
     Active Substance: LIFITEGRAST
     Indication: Dry eye
     Dosage: UNK, BID
     Route: 065
     Dates: start: 20190716, end: 202106
  2. XIIDRA [Suspect]
     Active Substance: LIFITEGRAST
     Dosage: 1 DRP, BID (BOTH EYE, 2XDAY).
     Route: 065
     Dates: start: 20201011

REACTIONS (3)
  - Hypoacusis [Unknown]
  - Visual impairment [Unknown]
  - Maternal exposure timing unspecified [Unknown]
